FAERS Safety Report 9564131 (Version 2)
Quarter: 2014Q1

REPORT INFORMATION
  Report Type: Spontaneous
  Country: US (occurrence: US)
  Receive Date: 20130929
  Receipt Date: 20140204
  Transmission Date: 20141002
  Serious: No
  Sender: FDA-Public Use
  Company Number: US-009507513-1309USA013553

PATIENT
  Sex: Male
  Weight: 74.83 kg

DRUGS (3)
  1. ZEGERID OTC CAPSULES [Suspect]
     Indication: DYSPEPSIA
     Dosage: UNK, QD
     Route: 048
     Dates: start: 201309
  2. ZEGERID OTC CAPSULES [Suspect]
     Dosage: UNK, QD
     Route: 048
  3. ZEGERID OTC CAPSULES [Suspect]
     Dosage: UNK, QD
     Route: 048

REACTIONS (4)
  - Abdominal pain upper [Recovered/Resolved]
  - Decreased appetite [Unknown]
  - Unevaluable event [Unknown]
  - Vomiting [Recovered/Resolved]
